FAERS Safety Report 15731390 (Version 5)
Quarter: 2019Q2

REPORT INFORMATION
  Report Type: Report from Study
  Country: US (occurrence: US)
  Receive Date: 20181217
  Receipt Date: 20190620
  Transmission Date: 20190711
  Serious: Yes (Hospitalization, Other)
  Sender: FDA-Public Use
  Company Number: US-SHIRE-US201848320

PATIENT
  Age: 71 Year
  Sex: Female

DRUGS (6)
  1. XARELTO [Concomitant]
     Active Substance: RIVAROXABAN
     Indication: PRODUCT USED FOR UNKNOWN INDICATION
  2. GATTEX [Suspect]
     Active Substance: TEDUGLUTIDE\WATER
     Dosage: 0.35 MILLILITER, 1X/DAY:QD
     Route: 058
     Dates: start: 20180813
  3. CIPRO [Concomitant]
     Active Substance: CIPROFLOXACIN HYDROCHLORIDE
     Indication: PRODUCT USED FOR UNKNOWN INDICATION
  4. GATTEX [Suspect]
     Active Substance: TEDUGLUTIDE\WATER
     Dosage: 3.5 MG, 1X/DAY:QD
     Route: 058
     Dates: start: 20180807
  5. GATTEX [Suspect]
     Active Substance: TEDUGLUTIDE\WATER
     Dosage: 3.5 MG, 1X/DAY:QD
     Route: 058
     Dates: start: 20180808
  6. GATTEX [Suspect]
     Active Substance: TEDUGLUTIDE\WATER
     Indication: SHORT-BOWEL SYNDROME
     Dosage: 0.35 ML, 1X/DAY:QD
     Route: 058
     Dates: start: 20180808

REACTIONS (14)
  - Fluid retention [Unknown]
  - Hernia [Not Recovered/Not Resolved]
  - Urticaria [Unknown]
  - Abdominal pain [Unknown]
  - Dyspnoea [Unknown]
  - Hospitalisation [Unknown]
  - Stoma complication [Not Recovered/Not Resolved]
  - Dehydration [Unknown]
  - Renal pain [Unknown]
  - Weight decreased [Unknown]
  - Complication associated with device [Unknown]
  - Product deposit [Unknown]
  - Abdominal discomfort [Unknown]
  - Stress [Unknown]

NARRATIVE: CASE EVENT DATE: 201901
